FAERS Safety Report 10360505 (Version 3)
Quarter: 2014Q3

REPORT INFORMATION
  Report Type: Spontaneous
  Country: US (occurrence: US)
  Receive Date: 20140804
  Receipt Date: 20140929
  Transmission Date: 20150326
  Serious: No
  Sender: FDA-Public Use
  Company Number: US-PFIZER INC-2014211673

PATIENT
  Age: 61 Year
  Sex: Female
  Weight: 70.75 kg

DRUGS (6)
  1. OMEPRAZOLE. [Suspect]
     Active Substance: OMEPRAZOLE
     Dosage: 40 MG, DAILY
     Route: 048
     Dates: start: 20140707, end: 20140807
  2. COUMADIN [Concomitant]
     Active Substance: WARFARIN SODIUM
     Indication: PULMONARY EMBOLISM
  3. GLIPIZIDE. [Suspect]
     Active Substance: GLIPIZIDE
     Indication: GLUCOSE TOLERANCE IMPAIRED
     Dosage: 10 MG, DAILY
     Route: 048
     Dates: start: 20130607, end: 20140724
  4. GLIPIZIDE. [Suspect]
     Active Substance: GLIPIZIDE
     Indication: DIABETES MELLITUS
     Dosage: 10 MG, 2X/DAY
     Dates: start: 2014
  5. OMEPRAZOLE. [Suspect]
     Active Substance: OMEPRAZOLE
     Indication: GASTROOESOPHAGEAL REFLUX DISEASE
     Dosage: UNK
     Dates: start: 201407, end: 201407
  6. COUMADIN [Concomitant]
     Active Substance: WARFARIN SODIUM
     Indication: DEEP VEIN THROMBOSIS
     Dosage: 5 MG, DAILY
     Route: 048
     Dates: start: 20131006

REACTIONS (9)
  - Chest pain [Recovering/Resolving]
  - Hyperhidrosis [Recovering/Resolving]
  - Asthenia [Not Recovered/Not Resolved]
  - Fall [Unknown]
  - Palpitations [Not Recovered/Not Resolved]
  - Fatigue [Recovering/Resolving]
  - Tremor [Recovering/Resolving]
  - Heart rate increased [Recovering/Resolving]
  - Abdominal pain upper [Recovering/Resolving]

NARRATIVE: CASE EVENT DATE: 201407
